FAERS Safety Report 25716336 (Version 2)
Quarter: 2025Q3

REPORT INFORMATION
  Report Type: Spontaneous
  Country: US (occurrence: US)
  Receive Date: 20250822
  Receipt Date: 20250827
  Transmission Date: 20251021
  Serious: Yes (Other)
  Sender: PFIZER
  Company Number: US-PFIZER INC-PV202500101091

PATIENT
  Age: 51 Year
  Sex: Female

DRUGS (3)
  1. LORBRENA [Suspect]
     Active Substance: LORLATINIB
     Indication: Non-small cell lung cancer metastatic
     Dates: start: 2021, end: 202501
  2. LORBRENA [Suspect]
     Active Substance: LORLATINIB
  3. LORBRENA [Suspect]
     Active Substance: LORLATINIB

REACTIONS (16)
  - Non-small cell lung cancer metastatic [Unknown]
  - Malignant neoplasm progression [Unknown]
  - Diabetes mellitus [Unknown]
  - Neuropathy peripheral [Unknown]
  - Metastases to central nervous system [Unknown]
  - Blood cholesterol increased [Unknown]
  - Blood glucose increased [Unknown]
  - Weight increased [Unknown]
  - Brain fog [Unknown]
  - Irritability [Unknown]
  - Speech disorder [Unknown]
  - Memory impairment [Unknown]
  - Increased appetite [Unknown]
  - Mobility decreased [Unknown]
  - Oedema peripheral [Unknown]
  - Skin disorder [Unknown]
